FAERS Safety Report 9198979 (Version 2)
Quarter: 2013Q2

REPORT INFORMATION
  Report Type: Spontaneous
  Country: US (occurrence: US)
  Receive Date: 20130329
  Receipt Date: 20130522
  Transmission Date: 20140414
  Serious: Yes (Hospitalization)
  Sender: FDA-Public Use
  Company Number: US-009507513-1303USA013124

PATIENT
  Age: 63 Year
  Sex: Male

DRUGS (2)
  1. SAPHRIS [Suspect]
     Indication: BIPOLAR DISORDER
     Dosage: 10 MG, BID
     Route: 060
     Dates: start: 20130304
  2. METFORMIN [Concomitant]

REACTIONS (3)
  - Mania [Unknown]
  - Blood glucose increased [Unknown]
  - Blood pressure increased [Unknown]
